FAERS Safety Report 21661637 (Version 1)
Quarter: 2022Q4

REPORT INFORMATION
  Report Type: Spontaneous
  Country: DE (occurrence: None)
  Receive Date: 20221130
  Receipt Date: 20221130
  Transmission Date: 20230112
  Serious: Yes (Hospitalization, Other)
  Sender: FDA-Public Use
  Company Number: DE-ROCHE-3225081

PATIENT
  Age: 65 Year
  Sex: Male

DRUGS (1)
  1. OBINUTUZUMAB [Suspect]
     Active Substance: OBINUTUZUMAB
     Indication: Chronic lymphocytic leukaemia
     Route: 042

REACTIONS (4)
  - Progressive multifocal leukoencephalopathy [Unknown]
  - Circulatory collapse [Unknown]
  - Coordination abnormal [Unknown]
  - Dysarthria [Unknown]
